FAERS Safety Report 9924714 (Version 1)
Quarter: 2014Q1

REPORT INFORMATION
  Report Type: Spontaneous
  Country: LB (occurrence: None)
  Receive Date: 20140220
  Receipt Date: 20140220
  Transmission Date: 20141002
  Serious: Yes (Hospitalization)
  Sender: FDA-Public Use
  Company Number: IMP_07471_2014

PATIENT
  Age: 21 Year
  Sex: Male

DRUGS (5)
  1. VALPROIC ACID [Suspect]
     Indication: BIPOLAR DISORDER
  2. SEROQUEL [Suspect]
     Indication: DRUG WITHDRAWAL SYNDROME
  3. PANADOL /00020001/ [Concomitant]
  4. PROFENID [Concomitant]
  5. VALIUM [Concomitant]

REACTIONS (2)
  - Hyperammonaemia [None]
  - Drug interaction [None]
